FAERS Safety Report 11205929 (Version 1)
Quarter: 2015Q2

REPORT INFORMATION
  Report Type: Spontaneous
  Country: US (occurrence: None)
  Receive Date: 20150619
  Receipt Date: 20150619
  Transmission Date: 20150821
  Serious: Yes (Other)
  Sender: FDA-Public Use
  Company Number: None

PATIENT
  Age: 86 Year
  Sex: Male
  Weight: 87.9 kg

DRUGS (8)
  1. ALBUMIN [Concomitant]
     Active Substance: ALBUMIN (HUMAN)
  2. ACETAZOLAMIDE. [Concomitant]
     Active Substance: ACETAZOLAMIDE
  3. CITALOPRAM [Concomitant]
     Active Substance: CITALOPRAM HYDROBROMIDE
  4. CORDARONE [Suspect]
     Active Substance: AMIODARONE HYDROCHLORIDE
  5. CEFEPIME [Concomitant]
     Active Substance: CEFEPIME\CEFEPIME HYDROCHLORIDE
  6. PHYTONADIONE. [Concomitant]
     Active Substance: PHYTONADIONE
  7. ASPIRIN. [Concomitant]
     Active Substance: ASPIRIN
  8. AZELASTINE [Concomitant]
     Active Substance: AZELASTINE

REACTIONS (3)
  - Hepatic failure [None]
  - Hypotension [None]
  - Ischaemia [None]

NARRATIVE: CASE EVENT DATE: 20150106
